FAERS Safety Report 8407807-4 (Version None)
Quarter: 2012Q2

REPORT INFORMATION
  Report Type: 
  Country: None (occurrence: None)
  Receive Date: 20120604
  Receipt Date: 20120529
  Transmission Date: 20120825
  Serious: No
  Sender: FDA-Public Use
  Company Number: US-BAYER-2012-054383

PATIENT
  Age: 72 Year
  Sex: Female

DRUGS (4)
  1. GERITOL [VITAMINS NOS] [Concomitant]
  2. FISH OIL [Concomitant]
     Dosage: UNK
     Dates: start: 20120525
  3. ALEVE (CAPLET) [Suspect]
     Indication: ARTHRITIS
     Dosage: 2 DF, Q4HR
     Route: 048
     Dates: start: 20120525
  4. ANTIHYPERTENSIVES [Concomitant]

REACTIONS (1)
  - NO ADVERSE EVENT [None]
